FAERS Safety Report 7626986-X (Version None)
Quarter: 2011Q3

REPORT INFORMATION
  Report Type: 
  Country: None (occurrence: None)
  Receive Date: 20110721
  Receipt Date: 20110720
  Transmission Date: 20111222
  Serious: Yes (Life-Threatening, Other)
  Sender: FDA-Public Use
  Company Number: GB-BRISTOL-MYERS SQUIBB COMPANY-15268303

PATIENT
  Age: 19 Year
  Sex: Female

DRUGS (15)
  1. ALLOPURINOL [Suspect]
     Route: 048
  2. OMEPRAZOLE [Suspect]
  3. CHLORPHENIRAMINE MALEATE [Suspect]
     Route: 042
  4. CASPOFUNGIN ACETATE [Suspect]
     Route: 042
  5. NORETHINDRONE [Suspect]
     Route: 048
  6. PIPERACILLIN AND TAZOBACTAM [Suspect]
     Route: 042
  7. MORPHINE SULFATE [Suspect]
     Route: 042
  8. VORICONAZOLE [Suspect]
     Route: 048
  9. ACETAMINOPHEN [Suspect]
     Route: 042
  10. CYCLOSPORINE [Suspect]
  11. KETALAR [Suspect]
     Indication: PAIN
     Route: 042
     Dates: start: 20070921, end: 20070928
  12. ONDANSETRON [Suspect]
     Dosage: ALSO TAKEN 6 MG OD
     Route: 042
  13. ETOPOPHOS PRESERVATIVE FREE [Suspect]
     Route: 042
     Dates: start: 20070915, end: 20070915
  14. ACYCLOVIR [Suspect]
  15. TPN [Concomitant]

REACTIONS (4)
  - VENOOCCLUSIVE LIVER DISEASE [None]
  - DILATATION INTRAHEPATIC DUCT ACQUIRED [None]
  - HEPATOTOXICITY [None]
  - LIVER FUNCTION TEST ABNORMAL [None]
